FAERS Safety Report 9698843 (Version 1)
Quarter: 2013Q4

REPORT INFORMATION
  Report Type: Spontaneous
  Country: NZ (occurrence: NZ)
  Receive Date: 20131120
  Receipt Date: 20131120
  Transmission Date: 20140711
  Serious: Yes (Life-Threatening, Other)
  Sender: FDA-Public Use
  Company Number: NZ-ROXANE LABORATORIES, INC.-2013-RO-01821RO

PATIENT
  Age: 51 Year
  Sex: Female

DRUGS (4)
  1. CITALOPRAM [Suspect]
  2. QUETIAPINE FUMARATE [Suspect]
  3. PARACETAMOL [Suspect]
  4. ETHANOL [Suspect]

REACTIONS (6)
  - Suicide attempt [Unknown]
  - Intentional overdose [Recovered/Resolved]
  - Hypothermia [Recovered/Resolved]
  - Pneumonia aspiration [Unknown]
  - Electrocardiogram QRS complex prolonged [Unknown]
  - Electrocardiogram QT prolonged [Unknown]
